FAERS Safety Report 7635654-X (Version None)
Quarter: 2011Q3

REPORT INFORMATION
  Report Type: 
  Country: None (occurrence: None)
  Receive Date: 20110726
  Receipt Date: 20110721
  Transmission Date: 20111222
  Serious: Yes (Death, Other)
  Sender: FDA-Public Use
  Company Number: PHHY2011DE02603

PATIENT
  Sex: Female

DRUGS (4)
  1. CLOZAPINE [Suspect]
     Indication: BIPOLAR DISORDER
     Dosage: 500 MG, QD
     Route: 048
     Dates: end: 20090330
  2. CLOZAPINE [Suspect]
     Indication: SCHIZOAFFECTIVE DISORDER
     Dosage: 2X50 UPTO 350 MG/DAY
     Route: 048
     Dates: start: 20090317, end: 20090322
  3. CLOZAPINE [Suspect]
     Dosage: 800 MG, QD
     Route: 048
  4. CLOZAPINE [Suspect]
     Dosage: 600 MG, QD
     Route: 048
     Dates: end: 20090405

REACTIONS (3)
  - DRUG INEFFECTIVE [None]
  - ANTIPSYCHOTIC DRUG LEVEL INCREASED [None]
  - PNEUMONIA [None]
